FAERS Safety Report 17514633 (Version 6)
Quarter: 2023Q2

REPORT INFORMATION
  Report Type: Spontaneous
  Country: AT (occurrence: AT)
  Receive Date: 20200309
  Receipt Date: 20230614
  Transmission Date: 20230721
  Serious: Yes (Other)
  Sender: FDA-Public Use
  Company Number: AT-009507513-1904AUT011511

PATIENT
  Sex: Female

DRUGS (5)
  1. TEMOZOLOMIDE [Suspect]
     Active Substance: TEMOZOLOMIDE
     Indication: Central nervous system lymphoma
     Dosage: 240 MG (150 MG/M2), D1-5, Q28, 6 CYCLES
     Route: 048
  2. RITUXIMAB [Suspect]
     Active Substance: RITUXIMAB
     Indication: Central nervous system lymphoma
     Dosage: 1400 MILLIGRAM, EVERY 4 WEEKS, 6 CYCLES
     Route: 058
  3. POMALIDOMIDE [Suspect]
     Active Substance: POMALIDOMIDE
     Indication: Ocular lymphoma
     Dosage: 4 MILLIGRAM, D1-21, Q28
     Route: 048
  4. CYTARABINE [Suspect]
     Active Substance: CYTARABINE
     Indication: Central nervous system lymphoma
     Dosage: 2 INJECTIONS, BIW
     Route: 037
  5. DEXAMETHASONE [Suspect]
     Active Substance: DEXAMETHASONE
     Indication: Ocular lymphoma
     Dosage: 20 MILLIGRAM, ONCE WEEKLY
     Route: 048

REACTIONS (5)
  - Hypogammaglobulinaemia [Recovered/Resolved]
  - Adrenal insufficiency [Recovered/Resolved]
  - Neurotoxicity [Recovered/Resolved]
  - Pneumonia [Recovered/Resolved]
  - Off label use [Unknown]
